FAERS Safety Report 10970178 (Version 1)
Quarter: 2015Q1

REPORT INFORMATION
  Report Type: Report from Study
  Country: US (occurrence: US)
  Receive Date: 20150331
  Receipt Date: 20150331
  Transmission Date: 20150721
  Serious: Yes (Other)
  Sender: FDA-Public Use
  Company Number: US-THROMBOGENICS INC-SPO-2014-1383

PATIENT
  Age: 67 Year
  Sex: Male

DRUGS (1)
  1. JETREA [Suspect]
     Active Substance: OCRIPLASMIN
     Indication: VITREOUS ADHESIONS
     Dosage: 0.125 MG, ONE TIME DOSE
     Route: 031
     Dates: start: 20130802, end: 20130802

REACTIONS (5)
  - Vitreous floaters [Recovered/Resolved]
  - Visual acuity reduced [Recovered/Resolved]
  - Metamorphopsia [Recovered/Resolved]
  - Dysmetropsia [Recovered/Resolved]
  - Vision blurred [Recovered/Resolved]

NARRATIVE: CASE EVENT DATE: 20130911
